FAERS Safety Report 4400040-2 (Version None)
Quarter: 2004Q3

REPORT INFORMATION
  Report Type: 
  Country: None (occurrence: None)
  Receive Date: 20040716
  Receipt Date: 20040630
  Transmission Date: 20050211
  Serious: Yes (Hospitalization)
  Sender: FDA-Public Use
  Company Number: FR-MERCK-0407FRA00001

PATIENT
  Age: 77 Year
  Sex: Female

DRUGS (5)
  1. VICODIN [Concomitant]
     Route: 048
  2. ASPIRIN LYSINE [Concomitant]
     Route: 048
  3. BISOPROLOL FUMARATE [Concomitant]
     Route: 048
  4. NICORANDIL [Concomitant]
     Route: 048
  5. ZOCOR [Suspect]
     Indication: HYPERCHOLESTEROLAEMIA
     Route: 048
     Dates: start: 20030901, end: 20040621

REACTIONS (2)
  - ACUTE PULMONARY OEDEMA [None]
  - RHABDOMYOLYSIS [None]
